FAERS Safety Report 12067860 (Version 4)
Quarter: 2016Q2

REPORT INFORMATION
  Report Type: Spontaneous
  Country: GB (occurrence: GB)
  Receive Date: 20160210
  Receipt Date: 20160602
  Transmission Date: 20160815
  Serious: Yes (Death, Hospitalization, Other)
  Sender: FDA-Public Use
  Company Number: GB-JNJFOC-20160123866

PATIENT
  Age: 52 Year
  Sex: Female

DRUGS (3)
  1. LEMSIP WITH PHENYLEPHRINE [Suspect]
     Active Substance: ACETAMINOPHEN\ASCORBIC ACID\PHENYLEPHRINE
     Indication: INFLUENZA
     Dosage: MORE THAN RECOMMONDED DOSES OF 8 TABLETS A DAY.
     Route: 065
     Dates: start: 2015
  2. PARACETAMOL [Suspect]
     Active Substance: ACETAMINOPHEN
     Indication: PAIN
     Route: 065
  3. PARACETAMOL [Suspect]
     Active Substance: ACETAMINOPHEN
     Route: 065

REACTIONS (9)
  - Overdose [Fatal]
  - Toxicity to various agents [Fatal]
  - Hepatic failure [Fatal]
  - Liver disorder [Unknown]
  - Restlessness [Fatal]
  - Somnolence [Unknown]
  - Multiple organ dysfunction syndrome [Fatal]
  - Renal failure [Fatal]
  - Condition aggravated [Fatal]

NARRATIVE: CASE EVENT DATE: 20151029
